FAERS Safety Report 9028857 (Version 1)
Quarter: 2013Q1

REPORT INFORMATION
  Report Type: Spontaneous
  Country: US (occurrence: US)
  Receive Date: 20130124
  Receipt Date: 20130124
  Transmission Date: 20140127
  Serious: No
  Sender: FDA-Public Use
  Company Number: US-009507513-1301USA009395

PATIENT
  Sex: Male

DRUGS (3)
  1. JANUMET [Suspect]
  2. NOVOLOG MIX 70/30 [Concomitant]
  3. GLYBURIDE [Concomitant]

REACTIONS (1)
  - Drug ineffective [Unknown]
